FAERS Safety Report 6615359-4 (Version None)
Quarter: 2010Q1

REPORT INFORMATION
  Report Type: 
  Country: None (occurrence: None)
  Receive Date: 20100305
  Receipt Date: 20090818
  Transmission Date: 20100710
  Serious: No
  Sender: FDA-Public Use
  Company Number: A0803594A

PATIENT
  Age: 71 Year
  Sex: Female

DRUGS (1)
  1. REQUIP [Suspect]
     Indication: PARKINSON'S DISEASE
     Route: 048
     Dates: start: 20050401, end: 20070801

REACTIONS (1)
  - GAMBLING [None]
